FAERS Safety Report 12197432 (Version 1)
Quarter: 2016Q1

REPORT INFORMATION
  Report Type: Report from Study
  Country: US (occurrence: US)
  Receive Date: 20160322
  Receipt Date: 20160322
  Transmission Date: 20160526
  Serious: No
  Sender: FDA-Public Use
  Company Number: US-AMGEN-USASL2016032273

PATIENT
  Age: 56 Year
  Sex: Female

DRUGS (1)
  1. ENBREL [Suspect]
     Active Substance: ETANERCEPT
     Indication: RHEUMATOID ARTHRITIS
     Dosage: 50 MG, QWK
     Route: 065
     Dates: start: 20160129

REACTIONS (6)
  - Injection site reaction [Unknown]
  - Back pain [Unknown]
  - Injection site erythema [Recovered/Resolved]
  - Injection site pruritus [Unknown]
  - Paraesthesia [Unknown]
  - Tremor [Unknown]

NARRATIVE: CASE EVENT DATE: 2016
